FAERS Safety Report 6858616-9 (Version None)
Quarter: 2010Q3

REPORT INFORMATION
  Report Type: 
  Country: None (occurrence: None)
  Receive Date: 20100719
  Receipt Date: 20080612
  Transmission Date: 20110219
  Serious: Yes (Hospitalization, Other)
  Sender: FDA-Public Use
  Company Number: US-PFIZER INC-2008012553

PATIENT
  Sex: Male
  Weight: 93.9 kg

DRUGS (8)
  1. CHANTIX [Suspect]
     Indication: SMOKING CESSATION THERAPY
     Route: 048
     Dates: start: 20071217, end: 20071224
  2. CHANTIX [Suspect]
     Indication: TOBACCO ABUSE
  3. AMBIEN [Concomitant]
  4. XANAX [Concomitant]
     Indication: PANIC DISORDER
  5. XANAX [Concomitant]
     Indication: DEPRESSION
  6. LISINOPRIL AND HYDROCHLOROTHIAZIDE [Concomitant]
  7. LANTUS [Concomitant]
  8. ALL OTHER THERAPEUTIC PRODUCTS [Concomitant]
     Dates: start: 20071209

REACTIONS (2)
  - SUICIDAL IDEATION [None]
  - SUICIDE ATTEMPT [None]
